FAERS Safety Report 4674278-3 (Version None)
Quarter: 2005Q2

REPORT INFORMATION
  Report Type: 
  Country: None (occurrence: None)
  Receive Date: 20050524
  Receipt Date: 20050511
  Transmission Date: 20051028
  Serious: Yes (Other)
  Sender: FDA-Public Use
  Company Number: USA041183524

PATIENT
  Age: 65 Year
  Sex: Female

DRUGS (9)
  1. FORTEO [Suspect]
     Indication: OSTEOPOROSIS
     Dosage: 20 UG DAY
     Dates: start: 20040401
  2. METHOTREXATE [Concomitant]
  3. SULINDAC [Concomitant]
  4. ACETYLSALICYLIC ACID SRT [Concomitant]
  5. TRIAMTERENE AND HYDROCHLOROTHIAZIDE [Concomitant]
  6. ELAVIL [Concomitant]
  7. CALCIUM AND VITAMIN D [Concomitant]
  8. FOLIC ACID [Concomitant]
  9. MULTI-VITAMIN [Concomitant]

REACTIONS (1)
  - THROMBOCYTHAEMIA [None]
